FAERS Safety Report 6859276-3 (Version None)
Quarter: 2010Q3

REPORT INFORMATION
  Report Type: 
  Country: None (occurrence: None)
  Receive Date: 20100719
  Receipt Date: 20080224
  Transmission Date: 20110219
  Serious: No
  Sender: FDA-Public Use
  Company Number: US-PFIZER INC-2008018974

PATIENT
  Sex: Male

DRUGS (4)
  1. CHANTIX [Suspect]
     Indication: SMOKING CESSATION THERAPY
     Dates: start: 20070201, end: 20080223
  2. ANTIBIOTICS [Concomitant]
  3. CORTICOSTEROIDS [Concomitant]
  4. OTHER RESPIRATORY SYSTEM PRODUCTS [Concomitant]

REACTIONS (10)
  - ABNORMAL DREAMS [None]
  - AGGRESSION [None]
  - ANXIETY [None]
  - EMOTIONAL DISORDER [None]
  - INSOMNIA [None]
  - LIMB INJURY [None]
  - NAUSEA [None]
  - OROPHARYNGEAL PAIN [None]
  - PULMONARY CONGESTION [None]
  - TOBACCO USER [None]
